FAERS Safety Report 20959117 (Version 1)
Quarter: 2022Q2

REPORT INFORMATION
  Report Type: Spontaneous
  Country: US (occurrence: US)
  Receive Date: 20220614
  Receipt Date: 20220614
  Transmission Date: 20220721
  Serious: No
  Sender: FDA-Public Use
  Company Number: US-MYLANLABS-2022M1037348

PATIENT
  Sex: Female

DRUGS (1)
  1. POTASSIUM CHLORIDE [Suspect]
     Active Substance: POTASSIUM CHLORIDE
     Indication: Mineral supplementation
     Dosage: 10 MILLIEQUIVALENT
     Dates: start: 2020

REACTIONS (3)
  - Malabsorption [Not Recovered/Not Resolved]
  - Product residue present [Not Recovered/Not Resolved]
  - Blood potassium decreased [Not Recovered/Not Resolved]
